FAERS Safety Report 13242486 (Version 1)
Quarter: 2017Q1

REPORT INFORMATION
  Report Type: Spontaneous
  Country: US (occurrence: US)
  Receive Date: 20170216
  Receipt Date: 20170216
  Transmission Date: 20170428
  Serious: Yes (Hospitalization)
  Sender: FDA-Public Use
  Company Number: None

PATIENT
  Age: 64 Year
  Sex: Female
  Weight: 81.65 kg

DRUGS (2)
  1. PLAVIX [Suspect]
     Active Substance: CLOPIDOGREL BISULFATE
  2. HEPARIN [Suspect]
     Active Substance: HEPARIN SODIUM
     Indication: THROMBOSIS
     Dates: start: 20150101, end: 20151125

REACTIONS (8)
  - Vaginal haemorrhage [None]
  - Haemorrhage intracranial [None]
  - Gastric ulcer haemorrhage [None]
  - Abdominal pain upper [None]
  - Diverticulitis [None]
  - Rectal haemorrhage [None]
  - Cerebrovascular accident [None]
  - Weight decreased [None]

NARRATIVE: CASE EVENT DATE: 20170101
